FAERS Safety Report 25857546 (Version 1)
Quarter: 2025Q3

REPORT INFORMATION
  Report Type: Spontaneous
  Country: CN (occurrence: CN)
  Receive Date: 20250929
  Receipt Date: 20250929
  Transmission Date: 20251020
  Serious: Yes (Other)
  Sender: ROCHE
  Company Number: CN-BoehringerIngelheim-2025-BI-097699

PATIENT
  Age: 79 Year
  Sex: Male
  Weight: 68.5 kg

DRUGS (1)
  1. ALTEPLASE [Suspect]
     Active Substance: ALTEPLASE
     Indication: Cerebral infarction
     Route: 042
     Dates: start: 20250905, end: 20250905

REACTIONS (2)
  - Gingival bleeding [Recovering/Resolving]
  - Haemolysis [Unknown]

NARRATIVE: CASE EVENT DATE: 20250905
